FAERS Safety Report 4855241-6 (Version None)
Quarter: 2005Q4

REPORT INFORMATION
  Report Type: 
  Country: None (occurrence: None)
  Receive Date: 20051215
  Receipt Date: 20050520
  Transmission Date: 20060501
  Serious: Yes (Hospitalization, Disabling)
  Sender: FDA-Public Use
  Company Number: US-MERCK-0505USA02573

PATIENT
  Age: 56 Year
  Sex: Female
  Weight: 84 kg

DRUGS (2)
  1. VIOXX [Suspect]
     Indication: PAIN
     Route: 048
  2. VIOXX [Suspect]
     Indication: ARTHRITIS
     Route: 048

REACTIONS (6)
  - ACUTE SINUSITIS [None]
  - CEREBROVASCULAR ACCIDENT [None]
  - GOUT [None]
  - HYPERTENSION [None]
  - RHINITIS ALLERGIC [None]
  - TYPE IV HYPERLIPIDAEMIA [None]
